FAERS Safety Report 10089709 (Version 3)
Quarter: 2014Q2

REPORT INFORMATION
  Report Type: Report from Study
  Country: CA (occurrence: CA)
  Receive Date: 20140421
  Receipt Date: 20140521
  Transmission Date: 20141212
  Serious: Yes (Hospitalization, Other)
  Sender: FDA-Public Use
  Company Number: CA-JNJFOC-20140412061

PATIENT
  Age: 34 Year
  Sex: Male
  Weight: 77 kg

DRUGS (3)
  1. REMICADE [Suspect]
     Indication: CROHN^S DISEASE
     Dosage: 385 MG
     Route: 042
     Dates: start: 20131220
  2. REMICADE [Suspect]
     Indication: CROHN^S DISEASE
     Route: 042
     Dates: start: 20140429
  3. REMICADE [Suspect]
     Indication: CROHN^S DISEASE
     Dosage: 385.MG
     Route: 042
     Dates: start: 201404

REACTIONS (4)
  - Inflammation [Unknown]
  - Abscess intestinal [Unknown]
  - Paraesthesia [Unknown]
  - Hypoaesthesia [Unknown]
